FAERS Safety Report 7985865-9 (Version None)
Quarter: 2011Q4

REPORT INFORMATION
  Report Type: 
  Country: None (occurrence: None)
  Receive Date: 20111007
  Receipt Date: 20110707
  Transmission Date: 20120403
  Serious: No
  Sender: FDA-Public Use
  Company Number: 2011HGS-002311

PATIENT
  Age: 49 Year
  Sex: Female
  Weight: 79.3795 kg

DRUGS (9)
  1. PREDNISONE [Concomitant]
  2. PREGABALIN [Concomitant]
  3. AMBIEN [Concomitant]
  4. AMLODIPINE [Concomitant]
  5. BENLYSTA [Suspect]
     Indication: LUPUS ENDOCARDITIS
     Dosage: 10 MG/KG, 1 IN  28 D, INTRAVENOUS DRIP
     Route: 041
     Dates: start: 20110412
  6. BENLYSTA [Suspect]
     Indication: SYSTEMIC LUPUS ERYTHEMATOSUS
     Dosage: 10 MG/KG, 1 IN  28 D, INTRAVENOUS DRIP
     Route: 041
     Dates: start: 20110412
  7. LISINOPRIL [Concomitant]
  8. METOPROLOL SUCCINATE [Concomitant]
  9. VALSARTAN (VALSARTAN) (VALSARTAN) [Concomitant]

REACTIONS (2)
  - PRODUCTIVE COUGH [None]
  - ASTHENIA [None]
